FAERS Safety Report 19694852 (Version 1)
Quarter: 2021Q3

REPORT INFORMATION
  Report Type: Spontaneous
  Country: DE (occurrence: DE)
  Receive Date: 20210813
  Receipt Date: 20210813
  Transmission Date: 20211014
  Serious: Yes (Hospitalization)
  Sender: FDA-Public Use
  Company Number: DE-TEVA-2021-DE-1940779

PATIENT
  Age: 76 Year
  Sex: Male
  Weight: 70 kg

DRUGS (11)
  1. METOCLOPRAMID [Concomitant]
     Active Substance: METOCLOPRAMIDE
     Indication: NAUSEA
     Dosage: 10 MG, UP TO THREE TIMES A DAY
     Route: 048
  2. 5? FU (FLUOROURACIL) [Suspect]
     Active Substance: FLUOROURACIL
     Dosage: ACCORDING TO THE SCHEME
     Route: 042
  3. CLOPIDOGREL [Suspect]
     Active Substance: CLOPIDOGREL BISULFATE
     Dosage: 75 MILLIGRAM DAILY;  1?0?0?0
     Route: 048
  4. OXALIPLATIN. [Suspect]
     Active Substance: OXALIPLATIN
     Dosage: ACCORDING TO THE SCHEME
     Route: 042
  5. CALCIUMFOLINAT [Suspect]
     Active Substance: LEUCOVORIN CALCIUM
     Dosage: ACCORDING TO THE SCHEME
     Route: 042
  6. EZETIMIB AL 10MG [Concomitant]
     Dosage: 10 MILLIGRAM DAILY; 0?0?1?0
     Route: 048
  7. RAMIPRIL. [Concomitant]
     Active Substance: RAMIPRIL
     Dosage: 10 MILLIGRAM DAILY;  1?0?1?0
     Route: 048
  8. ESOMEPRAZOL ARISTO 20MG [Concomitant]
     Dosage: 80 MILLIGRAM DAILY; 20 MG, 2?0?2?0
     Route: 048
  9. ATORVASTATIN [Concomitant]
     Active Substance: ATORVASTATIN
     Dosage: 40 MILLIGRAM DAILY;  0?0?1?0
     Route: 048
  10. SULFASALAZINE DELAYED?RELEASE [Concomitant]
     Active Substance: SULFASALAZINE
     Dosage: 3 GRAM DAILY; 1?1?1?0
     Route: 048
  11. AMLODIPIN [Concomitant]
     Active Substance: AMLODIPINE BESYLATE
     Dosage: 5 MILLIGRAM DAILY;  1?0?0?0
     Route: 048

REACTIONS (6)
  - Haematuria [Unknown]
  - General physical health deterioration [Unknown]
  - Fatigue [Unknown]
  - Pain in extremity [Unknown]
  - Pain [Unknown]
  - Anaemia [Unknown]
